FAERS Safety Report 10794344 (Version 1)
Quarter: 2015Q1

REPORT INFORMATION
  Report Type: Spontaneous
  Country: US (occurrence: US)
  Receive Date: 20150213
  Receipt Date: 20150213
  Transmission Date: 20150721
  Serious: No
  Sender: FDA-Public Use
  Company Number: US-PFIZER INC-2015050398

PATIENT
  Age: 41 Year
  Sex: Female
  Weight: 131 kg

DRUGS (5)
  1. LYRICA [Suspect]
     Active Substance: PREGABALIN
     Indication: FIBROMYALGIA
     Dosage: 100 MG, 2X/DAY
  2. VITAMIN D [Concomitant]
     Active Substance: CHOLECALCIFEROL
     Dosage: 1000 IU, UNK
  3. IBUPROFEN. [Concomitant]
     Active Substance: IBUPROFEN
     Indication: PAIN
     Dosage: 800 MG, UNK
  4. LISINOPRIL. [Concomitant]
     Active Substance: LISINOPRIL
     Indication: HYPERTENSION
     Dosage: 20 MG, UNK
  5. ZOCOR [Concomitant]
     Active Substance: SIMVASTATIN
     Dosage: 40 MG, UNK

REACTIONS (11)
  - Bone pain [Unknown]
  - Peripheral swelling [Unknown]
  - Pain [Unknown]
  - Weight decreased [Unknown]
  - Somnolence [Unknown]
  - Decreased appetite [Unknown]
  - Thirst [Unknown]
  - Anxiety [Unknown]
  - Discomfort [Unknown]
  - Feeling cold [Unknown]
  - Pain in extremity [Unknown]
